FAERS Safety Report 4778998-1 (Version None)
Quarter: 2005Q3

REPORT INFORMATION
  Report Type: 
  Country: None (occurrence: None)
  Receive Date: 20050923
  Receipt Date: 20050913
  Transmission Date: 20060218
  Serious: Yes (Hospitalization)
  Sender: FDA-Public Use
  Company Number: 002-0981-M0200347

PATIENT
  Age: 46 Year
  Sex: Male
  Weight: 141.9759 kg

DRUGS (13)
  1. LIPITOR [Suspect]
     Indication: HYPERLIPIDAEMIA
     Dosage: 10 MG (1 IN 1D), ORAL
     Route: 048
     Dates: start: 20020327
  2. TELMISARTAN (TELMISARTAN) [Concomitant]
  3. ROSIGLITAZONE MALEATE (ROSIGLITAZINE MALEATE) [Concomitant]
  4. FLOVENT [Concomitant]
  5. GLUCOPHAGE [Concomitant]
  6. NOVASEN (ACETYLSALICYLIC ACID) [Concomitant]
  7. NOVOLIN N [Concomitant]
  8. NOVOLIN GE TORONTO (INSULIN HUMAN) [Concomitant]
  9. TIAZAC [Concomitant]
  10. VASOTEC [Concomitant]
  11. VENTOLIN [Concomitant]
  12. NAPROSYN [Concomitant]
  13. NAZATIDINE (NIZATIDINE) [Concomitant]

REACTIONS (5)
  - BACK PAIN [None]
  - CONDITION AGGRAVATED [None]
  - DIABETES MELLITUS [None]
  - POLLAKIURIA [None]
  - URINARY TRACT INFECTION [None]
